FAERS Safety Report 6534090-7 (Version None)
Quarter: 2010Q1

REPORT INFORMATION
  Report Type: 
  Country: None (occurrence: None)
  Receive Date: 20100112
  Receipt Date: 20100107
  Transmission Date: 20100710
  Serious: Yes (Death, Disabling, Other)
  Sender: FDA-Public Use
  Company Number: PHHY2010CN00828

PATIENT
  Age: 39 Year
  Sex: Female

DRUGS (4)
  1. IMATINIB [Suspect]
     Indication: CHRONIC MYELOID LEUKAEMIA
     Dosage: 600 MG, QD
  2. IMATINIB [Suspect]
     Dosage: 300 OR 400 MG/DAY
  3. RADIOTHERAPY [Suspect]
  4. CHEMOTHERAPEUTICS [Suspect]

REACTIONS (7)
  - ARTHRALGIA [None]
  - BLAST CRISIS IN MYELOGENOUS LEUKAEMIA [None]
  - INFECTION [None]
  - LEUKAEMIC INFILTRATION EXTRAMEDULLARY [None]
  - MULTI-ORGAN FAILURE [None]
  - OEDEMA PERIPHERAL [None]
  - SUBCUTANEOUS NODULE [None]
